FAERS Safety Report 12140786 (Version 1)
Quarter: 2016Q1

REPORT INFORMATION
  Report Type: Spontaneous
  Country: US (occurrence: US)
  Receive Date: 20160303
  Receipt Date: 20160303
  Transmission Date: 20160526
  Serious: No
  Sender: FDA-Public Use
  Company Number: US-009507513-1602USA009242

PATIENT
  Age: 73 Year
  Sex: Female

DRUGS (1)
  1. COTAZYM [Suspect]
     Active Substance: PANCRELIPASE
     Indication: STEATORRHOEA
     Dosage: 5-6 DOSES, QD (PER DAY)
     Route: 048

REACTIONS (3)
  - Constipation [Recovered/Resolved]
  - Abdominal distension [Recovered/Resolved]
  - Abdominal pain [Unknown]
